FAERS Safety Report 9286980 (Version 1)
Quarter: 2013Q2

REPORT INFORMATION
  Report Type: Spontaneous
  Country: US (occurrence: None)
  Receive Date: 20130508
  Receipt Date: 20130508
  Transmission Date: 20140414
  Serious: Yes (Hospitalization, Other)
  Sender: FDA-Public Use
  Company Number: DRUG: 13-01978

PATIENT
  Age: 44 Year
  Sex: Female

DRUGS (3)
  1. ASTHMANEFRIN [Suspect]
     Indication: ASTHMA
     Dosage: 1INHALATION ONCE 054
     Route: 055
     Dates: start: 20130423
  2. NEPHRON PHARMACEUTICALS CORPORATION [Suspect]
  3. EZ BREATHE ATOMIZER [Concomitant]

REACTIONS (3)
  - Feeling jittery [None]
  - Headache [None]
  - Device malfunction [None]
